FAERS Safety Report 18862604 (Version 2)
Quarter: 2021Q1

REPORT INFORMATION
  Report Type: Report from Study
  Country: US (occurrence: US)
  Receive Date: 20210208
  Receipt Date: 20210217
  Transmission Date: 20210420
  Serious: Yes (Hospitalization)
  Sender: FDA-Public Use
  Company Number: US-BAYER-2021-055858

PATIENT
  Age: 66 Year
  Sex: Female
  Weight: 64.13 kg

DRUGS (2)
  1. ADEMPAS [Suspect]
     Active Substance: RIOCIGUAT
     Indication: PULMONARY ARTERIAL HYPERTENSION
     Dosage: 1 MG, TID
     Route: 048
     Dates: start: 20210129
  2. VELETRI [Suspect]
     Active Substance: EPOPROSTENOL
     Dosage: UNK

REACTIONS (13)
  - Pain in jaw [None]
  - Hospitalisation [None]
  - Hypotension [Unknown]
  - Headache [None]
  - Arthralgia [Unknown]
  - Dizziness [Unknown]
  - Dizziness postural [None]
  - Oedema peripheral [Unknown]
  - Abdominal pain upper [Unknown]
  - Muscle spasms [Unknown]
  - Dyspnoea [None]
  - Nausea [None]
  - Faeces soft [None]

NARRATIVE: CASE EVENT DATE: 2021
